FAERS Safety Report 22692656 (Version 2)
Quarter: 2024Q3

REPORT INFORMATION
  Report Type: Spontaneous
  Country: US (occurrence: US)
  Receive Date: 20230711
  Receipt Date: 20240722
  Transmission Date: 20241016
  Serious: No
  Sender: ASTELLAS
  Company Number: US-ASTELLAS-2022US025436

PATIENT
  Sex: Female

DRUGS (1)
  1. MYRBETRIQ [Suspect]
     Active Substance: MIRABEGRON
     Indication: Bladder disorder
     Dosage: 25 MG, ONCE DAILY, TOOK 5 DOSES (5 DAYS) AND STOPPED
     Route: 048

REACTIONS (1)
  - Expired product administered [Unknown]
